FAERS Safety Report 4682132-6 (Version None)
Quarter: 2005Q2

REPORT INFORMATION
  Report Type: 
  Country: None (occurrence: None)
  Receive Date: 20050603
  Receipt Date: 20050603
  Transmission Date: 20051028
  Serious: Yes (Hospitalization)
  Sender: FDA-Public Use
  Company Number: None

PATIENT
  Age: 45 Year
  Sex: Female
  Weight: 122.4712 kg

DRUGS (5)
  1. HUMIRA [Suspect]
     Indication: RHEUMATOID ARTHRITIS
     Dosage: 40 MG    EVERY 2 WEEKS   SUBCUTANEO
     Route: 058
     Dates: start: 20050301, end: 20050514
  2. NAPROSYN [Concomitant]
  3. PLAQUENIL [Concomitant]
  4. LOSARTAN [Concomitant]
  5. NPH INSULIN [Concomitant]

REACTIONS (1)
  - MENINGITIS HERPES [None]
